FAERS Safety Report 7736389-5 (Version None)
Quarter: 2011Q3

REPORT INFORMATION
  Report Type: 
  Country: None (occurrence: None)
  Receive Date: 20110908
  Receipt Date: 20110830
  Transmission Date: 20111222
  Serious: Yes (Hospitalization)
  Sender: FDA-Public Use
  Company Number: JP-AMGEN-JPNSP2011035210

PATIENT
  Age: 74 Year
  Sex: Female
  Weight: 41.8 kg

DRUGS (14)
  1. ALENDRONATE SODIUM [Concomitant]
     Indication: OSTEOPOROSIS
     Dosage: 35 MG, 1X/DAY
     Route: 048
     Dates: start: 20110405
  2. PREDNISOLONE [Concomitant]
     Indication: RHEUMATOID ARTHRITIS
     Dosage: 5 MG, 1X/DAY
     Route: 048
  3. AZULFIDINE [Concomitant]
     Indication: RHEUMATOID ARTHRITIS
     Dosage: 250 MG, 2X/DAY
     Route: 048
  4. ETIZOLAM [Concomitant]
     Indication: PSYCHOSOMATIC DISEASE
     Dosage: 0.5 MG, 1X/DAY
     Route: 048
     Dates: start: 20110405
  5. FEBUXOSTAT [Concomitant]
     Indication: HYPERURICAEMIA
     Dosage: 10 MG, 2X/DAY
     Route: 048
     Dates: start: 20110610
  6. TORSEMIDE [Concomitant]
     Indication: OEDEMA DUE TO RENAL DISEASE
     Dosage: 2 MG, 1X/DAY
     Route: 048
     Dates: start: 20110405, end: 20110526
  7. DARBEPOETIN ALFA [Suspect]
     Indication: NEPHROGENIC ANAEMIA
     Dosage: 30 MUG, 2 TIMES/WK
     Route: 041
     Dates: start: 20110408
  8. REZALTAS COMBINATION [Concomitant]
     Indication: HYPERTENSION
     Dosage: 1 DF, 1X/DAY
     Route: 048
     Dates: start: 20110405
  9. NORVASC [Concomitant]
     Indication: HYPERTENSION
     Dosage: 5 MG, 1X/DAY
     Route: 048
     Dates: start: 20110527
  10. ENBREL [Suspect]
     Dosage: UNK
     Dates: start: 20110624
  11. LAFUTIDINE [Concomitant]
     Indication: GASTROOESOPHAGEAL REFLUX DISEASE
     Dosage: 5 MG, 1X/DAY
     Route: 048
     Dates: start: 20110405
  12. TORSEMIDE [Concomitant]
     Dosage: 4 MG, 1X/DAY
     Route: 048
     Dates: start: 20110527
  13. ENBREL [Suspect]
     Indication: RHEUMATOID ARTHRITIS
     Dosage: 25 MG, WEEKLY
     Route: 058
     Dates: start: 20110408, end: 20110611
  14. ISONIAZID [Concomitant]
     Indication: PROPHYLAXIS
     Dosage: 300 MG, 1X/DAY
     Route: 048

REACTIONS (1)
  - LACUNAR INFARCTION [None]
